FAERS Safety Report 6317239-0 (Version None)
Quarter: 2009Q3

REPORT INFORMATION
  Report Type: 
  Country: None (occurrence: None)
  Receive Date: 20090819
  Receipt Date: 20090811
  Transmission Date: 20100115
  Serious: Yes (Hospitalization, Other)
  Sender: FDA-Public Use
  Company Number: SPV1-2009-01649

PATIENT
  Age: 65 Year
  Sex: Male
  Weight: 97.5 kg

DRUGS (17)
  1. ADDERALL XR [Suspect]
     Indication: ATTENTION DEFICIT/HYPERACTIVITY DISORDER
     Dosage: 30 MG, 1X/DAY; QD, ORAL
     Route: 048
     Dates: start: 20000101
  2. ADDERALL 30 [Suspect]
     Indication: ATTENTION DEFICIT/HYPERACTIVITY DISORDER
     Dosage: 30 MG, 1X/DAY: QD (2 CAPSULES 15 MG), ORAL
     Route: 048
     Dates: start: 20060101
  3. PREVACID [Concomitant]
  4. ALLEGRA [Concomitant]
  5. FLOMAX (MORNIFLUMATE) [Concomitant]
  6. LISINOPRIL [Concomitant]
  7. SIMVASTATIN [Concomitant]
  8. SUCRALFATE [Concomitant]
  9. PROSCAR [Concomitant]
  10. ANTIHISTAMINES [Concomitant]
  11. VITAMIN D (ERFOCALCIFEROL) [Concomitant]
  12. TYLENOL EXTRA STRENGTH (PARACETAMOL) CAPSULE [Concomitant]
  13. VITAMINAS B12 (CYANOCOBALAMIN) [Concomitant]
  14. VITAMIN E [Concomitant]
  15. BETA CAROTENE (BETACAROTENE) [Concomitant]
  16. CALCIUM (CALCIUM) [Concomitant]
  17. MULTIVIT (VITAMIN NOS) [Concomitant]

REACTIONS (5)
  - AGGRESSION [None]
  - ARTHRITIS [None]
  - COLONIC POLYP [None]
  - CONDITION AGGRAVATED [None]
  - IMPATIENCE [None]
